FAERS Safety Report 10362509 (Version 1)
Quarter: 2014Q3

REPORT INFORMATION
  Report Type: Spontaneous
  Country: US (occurrence: None)
  Receive Date: 20140728
  Receipt Date: 20140728
  Transmission Date: 20150326
  Serious: Yes (Hospitalization, Other)
  Sender: FDA-Public Use
  Company Number: UTC-046977

PATIENT
  Age: 65 Year
  Sex: Female
  Weight: 77.1 kg

DRUGS (25)
  1. BUDESONIDE-FORMOTEROL (BUDESONIDE, FORMOTEROL FUMARATE) [Concomitant]
  2. DOCUSATE SODIUM (DOCUSATE SODIUM) [Concomitant]
     Active Substance: DOCUSATE SODIUM
  3. FAMOTIDINE (FAMOTIDINE) [Concomitant]
     Active Substance: FAMOTIDINE
  4. TRAMADOL (TRAMADOL) [Concomitant]
     Active Substance: TRAMADOL
  5. CEFPDOXIME (CEFPODOXIME) [Concomitant]
  6. HYDROXYZINE (HYDROXYZINE) [Concomitant]
     Active Substance: HYDROXYZINE HYDROCHLORIDE
  7. CEFTRIAXONE (CEFTRIAXONE) [Concomitant]
     Active Substance: CEFTRIAXONE
  8. REMODULIN [Suspect]
     Active Substance: TREPROSTINIL
     Indication: PULMONARY ARTERIAL HYPERTENSION
     Route: 041
     Dates: start: 20130509
  9. FUROSEMIDE (FUROSEMIDE) [Concomitant]
     Active Substance: FUROSEMIDE
  10. ACETAMINOPHEN (PARACETAMOL) [Concomitant]
     Active Substance: ACETAMINOPHEN
  11. CYCLOSPORINE (CICLOSPORIN) [Concomitant]
     Active Substance: CYCLOSPORINE
  12. OXYBUTYNIN (OXYBUTYNIN HYDROCHLORIDE) [Concomitant]
  13. POTASSIUM CHLORIDE (POTASSIUM CHLORIDE) [Concomitant]
     Active Substance: POTASSIUM CHLORIDE
  14. SPIRONOLACTONE (SPIRONOLACTONE) [Concomitant]
     Active Substance: SPIRONOLACTONE
  15. LETAIRIS [Concomitant]
     Active Substance: AMBRISENTAN
  16. MAGNESIUM OXIDE (MAGNESIUM OXIDE) [Concomitant]
     Active Substance: MAGNESIUM OXIDE
  17. PIMECROLIMUS (PIMECROLIMUS) [Concomitant]
  18. WARFARIN (WARFARIN) [Concomitant]
     Active Substance: WARFARIN
  19. GABAPENTIN (GABAPENTIN) [Concomitant]
     Active Substance: GABAPENTIN
  20. GENTEAL (HYPROMELLOSE) [Concomitant]
  21. BETAMETHASONE DIPROPIONATE (BETAMETHASONE DIPROPIONATE) [Concomitant]
     Active Substance: BETAMETHASONE DIPROPIONATE
  22. ESCITALOPAM (ESCITALOPRAM) [Concomitant]
  23. METOLAZONE (METOLAZONE) [Concomitant]
  24. OXYGEN (OXYGEN) [Concomitant]
     Active Substance: OXYGEN
  25. SILDENAFIL (SILDENAFIL) [Concomitant]
     Active Substance: SILDENAFIL

REACTIONS (18)
  - Pyrexia [None]
  - Muscular weakness [None]
  - Pulmonary hypertension [None]
  - Feeling cold [None]
  - Renal failure acute [None]
  - Cellulitis [None]
  - Vomiting [None]
  - Red blood cell count decreased [None]
  - Blood potassium decreased [None]
  - Nausea [None]
  - Peripheral swelling [None]
  - Weight increased [None]
  - Haematoma [None]
  - Feeling hot [None]
  - Blood sodium decreased [None]
  - Erythema [None]
  - Haemoglobin decreased [None]
  - Haematocrit decreased [None]

NARRATIVE: CASE EVENT DATE: 201402
